FAERS Safety Report 9703590 (Version 2)
Quarter: 2014Q1

REPORT INFORMATION
  Report Type: Spontaneous
  Country: US (occurrence: US)
  Receive Date: 20131122
  Receipt Date: 20140210
  Transmission Date: 20141002
  Serious: Yes (Other)
  Sender: FDA-Public Use
  Company Number: US-PFIZER INC-2013333578

PATIENT
  Age: 52 Year
  Sex: Female
  Weight: 65.76 kg

DRUGS (15)
  1. LYRICA [Suspect]
     Dosage: 150 MG, 1X/DAY
     Dates: start: 2013, end: 2013
  2. LYRICA [Suspect]
     Dosage: 300 MG, 1X/DAY
     Dates: start: 2013, end: 2013
  3. LYRICA [Suspect]
     Dosage: 150 MG, 1X/DAY
     Dates: start: 2013
  4. LYRICA [Suspect]
     Dosage: 75 MG, 3X/DAY
     Route: 048
  5. LEVOTHYROXINE [Concomitant]
     Indication: HYPERTHYROIDISM
     Dosage: 50 MG, DAILY
  6. LEVOTHYROXINE [Concomitant]
     Dosage: 125 UG, UNK
     Route: 048
  7. HYDROCODONE [Concomitant]
     Dosage: 2 MG, 1X/DAY
     Route: 048
  8. FENTANYL [Concomitant]
     Dosage: 50 UG, 3X/DAY
  9. FENTANYL [Concomitant]
     Dosage: UNK, (100 MCG/HR PATCH 100 MCG/HR)
  10. METHYLPHENIDATE [Concomitant]
     Dosage: 10 MG, 1X/DAY (5 MG TABLET 2 QD)
     Route: 048
  11. CYMBALTA [Concomitant]
     Dosage: 60 MG, 1X/DAY
     Route: 048
  12. TEGRETOL [Concomitant]
     Dosage: UNK, (100 MG/4ML)
     Route: 048
  13. HYDROMORPHONE [Concomitant]
     Dosage: 2 MG, UNK
  14. ONDANSETRON HYDROCHLORIDE [Concomitant]
     Dosage: 4 MG, UNK
  15. LISINOPRIL [Concomitant]
     Dosage: 20 MG, UNK

REACTIONS (23)
  - Autonomic neuropathy [Unknown]
  - Otitis media chronic [Unknown]
  - Local swelling [Recovered/Resolved]
  - Influenza [Recovering/Resolving]
  - Vomiting [Recovering/Resolving]
  - Malaise [Recovering/Resolving]
  - Pain [Unknown]
  - Insomnia [Unknown]
  - Joint stiffness [Unknown]
  - Arthralgia [Unknown]
  - Myalgia [Unknown]
  - Tenderness [Unknown]
  - Muscular weakness [Unknown]
  - Hypoaesthesia [Unknown]
  - Paraesthesia [Unknown]
  - Anxiety [Unknown]
  - Depression [Unknown]
  - Nausea [Unknown]
  - Hypertension [Unknown]
  - Back pain [Unknown]
  - Sciatica [Unknown]
  - Headache [Unknown]
  - Neck pain [Unknown]
